FAERS Safety Report 4796344-4 (Version None)
Quarter: 2005Q4

REPORT INFORMATION
  Report Type: 
  Country: None (occurrence: None)
  Receive Date: 20051007
  Receipt Date: 20050906
  Transmission Date: 20060501
  Serious: Yes (Other)
  Sender: FDA-Public Use
  Company Number: 2005BI016542

PATIENT
  Age: 54 Year
  Sex: Male

DRUGS (5)
  1. ZEVALIN [Suspect]
     Indication: NON-HODGKIN'S LYMPHOMA
     Dosage: 375 MG; IX; 375 MG; IX; IX
     Dates: start: 20050601, end: 20050601
  2. ZEVALIN [Suspect]
     Indication: NON-HODGKIN'S LYMPHOMA
     Dosage: 375 MG; IX; 375 MG; IX; IX
     Dates: start: 20050617, end: 20050617
  3. ZEVALIN [Suspect]
     Indication: NON-HODGKIN'S LYMPHOMA
     Dosage: 375 MG; IX; 375 MG; IX; IX
     Dates: start: 20050617, end: 20050617
  4. ZEVALIN [Suspect]
  5. ZEVALIN [Suspect]

REACTIONS (2)
  - NEUROPATHY PERIPHERAL [None]
  - POLYNEUROPATHY [None]
